FAERS Safety Report 22176704 (Version 5)
Quarter: 2023Q2

REPORT INFORMATION
  Report Type: Spontaneous
  Country: US (occurrence: US)
  Receive Date: 20230405
  Receipt Date: 20230627
  Transmission Date: 20230722
  Serious: No
  Sender: FDA-Public Use
  Company Number: US-SA-SAC20230403001489

PATIENT
  Age: 65 Year
  Sex: Male

DRUGS (4)
  1. DUPIXENT [Suspect]
     Active Substance: DUPILUMAB
     Indication: Dermatitis atopic
     Dosage: 300 MG, QOW
     Route: 058
     Dates: start: 20221123
  2. VITAMINS [Concomitant]
     Active Substance: VITAMINS
  3. TRIAMCINOLONE [Concomitant]
     Active Substance: TRIAMCINOLONE
  4. DOXYCYCLINE [Concomitant]
     Active Substance: DOXYCYCLINE

REACTIONS (11)
  - Injection site mass [Not Recovered/Not Resolved]
  - Infection [Not Recovered/Not Resolved]
  - Initial insomnia [Not Recovered/Not Resolved]
  - Eye irritation [Unknown]
  - Rash [Not Recovered/Not Resolved]
  - Skin discomfort [Not Recovered/Not Resolved]
  - Sleep disorder [Not Recovered/Not Resolved]
  - Oropharyngeal pain [Unknown]
  - Injection site reaction [Unknown]
  - Product dose omission in error [Unknown]
  - Drug ineffective [Unknown]
